FAERS Safety Report 4440496-2 (Version None)
Quarter: 2004Q3

REPORT INFORMATION
  Report Type: 
  Country: None (occurrence: None)
  Receive Date: 20040728
  Receipt Date: 20040518
  Transmission Date: 20050211
  Serious: No
  Sender: FDA-Public Use
  Company Number: USA030844674

PATIENT
  Age: 6 Year
  Sex: Male
  Weight: 24 kg

DRUGS (6)
  1. STRATTERA [Suspect]
     Indication: AUTISM
     Dosage: 36 MG/L DAY
     Dates: start: 20030814
  2. DEXTRO AMPHETAMINE SULFATE TAB [Concomitant]
  3. ZANTAC [Concomitant]
  4. TENEX (GAUNFACINE HYDROCHLORIDE) [Concomitant]
  5. RISPERDAL [Concomitant]
  6. PRILOSEC [Concomitant]

REACTIONS (8)
  - AGGRESSION [None]
  - ANGER [None]
  - GROWTH RETARDATION [None]
  - INCREASED APPETITE [None]
  - SCREAMING [None]
  - SOMNOLENCE [None]
  - TIC [None]
  - WEIGHT INCREASED [None]
